FAERS Safety Report 5742949-3 (Version None)
Quarter: 2008Q2

REPORT INFORMATION
  Report Type: 
  Country: None (occurrence: None)
  Receive Date: 20080515
  Receipt Date: 20080515
  Transmission Date: 20081010
  Serious: Yes (Death, Hospitalization)
  Sender: FDA-Public Use
  Company Number: None

PATIENT
  Sex: Female
  Weight: 54.4316 kg

DRUGS (1)
  1. DIGITEK 125 MG ACTAVIS TOTOWA LLC [Suspect]
     Indication: CARDIAC DISORDER
     Dosage: 1 PER DAY PO
     Route: 048
     Dates: start: 20070103, end: 20070901

REACTIONS (6)
  - ANOREXIA [None]
  - BLOOD PRESSURE ABNORMAL [None]
  - DIZZINESS [None]
  - NAUSEA [None]
  - PALPITATIONS [None]
  - PHARMACEUTICAL PRODUCT COMPLAINT [None]
